FAERS Safety Report 5503786-8 (Version None)
Quarter: 2007Q4

REPORT INFORMATION
  Report Type: 
  Country: None (occurrence: None)
  Receive Date: 20071101
  Receipt Date: 20071024
  Transmission Date: 20080405
  Serious: Yes (Other)
  Sender: FDA-Public Use
  Company Number: GB-BRISTOL-MYERS SQUIBB COMPANY-13866660

PATIENT
  Weight: 2 kg

DRUGS (7)
  1. CYCLOPHOSPHAMIDE [Suspect]
     Indication: BREAST CANCER
     Dosage: 800MG IN THE FIRST CYCLE.880MG IN THE SECOND CYCLE. 900MG FOR THE REMAINING 4 CYCLES.
     Route: 064
     Dates: start: 20070529, end: 20070529
  2. DOXORUBICIN HCL [Suspect]
     Indication: BREAST CANCER
     Dosage: 80MG IN THE FIRST;88MG IN THE SECOND AND 90MG FOR THE REMAINING 4 CYCLES.
     Route: 064
     Dates: start: 20070529, end: 20070529
  3. ONDANSETRON [Concomitant]
     Route: 064
     Dates: start: 20070101, end: 20070529
  4. METOCLOPRAMIDE [Concomitant]
     Route: 064
     Dates: start: 20070101, end: 20070529
  5. SENNA [Concomitant]
     Indication: CONSTIPATION
     Route: 064
  6. MOVICOL [Concomitant]
     Indication: CONSTIPATION
     Route: 064
  7. CHLORHEXIDINE GLUCONATE [Concomitant]
     Route: 064

REACTIONS (4)
  - NEUTROPENIA [None]
  - PREGNANCY [None]
  - PREMATURE LABOUR [None]
  - WEIGHT DECREASED [None]
